FAERS Safety Report 9321890 (Version 1)
Quarter: 2013Q2

REPORT INFORMATION
  Report Type: Spontaneous
  Country: IT (occurrence: GB)
  Receive Date: 20130531
  Receipt Date: 20130531
  Transmission Date: 20140414
  Serious: Yes (Disabling)
  Sender: FDA-Public Use
  Company Number: GB-FRI-1000045488

PATIENT
  Age: 81 Year
  Sex: Male
  Weight: 98 kg

DRUGS (16)
  1. NEBIVOLOL [Suspect]
     Dates: start: 20130423
  2. ASPIRIN [Concomitant]
     Dates: start: 20130205
  3. BISOPROLOL [Concomitant]
     Dates: start: 20130205, end: 20130416
  4. FLUOXETINE [Concomitant]
     Dates: start: 20130205
  5. GLICLAZIDE [Concomitant]
     Dates: start: 20130205
  6. GLYCERYL [Concomitant]
     Dates: start: 20130205, end: 20130305
  7. GLYCERYL [Concomitant]
     Dates: start: 20130425
  8. ISOSORBIDE MONONITRATE [Concomitant]
     Dates: start: 20130205
  9. LATANOPROST [Concomitant]
     Dates: start: 20130205
  10. LISINOPRIL [Concomitant]
     Dates: start: 20130205
  11. NICORANDIL [Concomitant]
     Dates: start: 20130205
  12. OLIVE OIL [Concomitant]
     Dates: start: 20130219, end: 20130320
  13. PARACETAMOL [Concomitant]
     Dates: start: 20130205, end: 20130305
  14. PARACETAMOL [Concomitant]
     Dates: start: 20130425
  15. SIMVASTATIN [Concomitant]
     Dates: start: 20130205, end: 20130305
  16. SIMVASTATIN [Concomitant]
     Dates: start: 20130425

REACTIONS (6)
  - Chest pain [Unknown]
  - Pruritus generalised [Recovering/Resolving]
  - Pain in extremity [Recovering/Resolving]
  - Nightmare [Recovering/Resolving]
  - Dyspnoea [Unknown]
  - Chest discomfort [Recovering/Resolving]
